FAERS Safety Report 21650523 (Version 1)
Quarter: 2022Q4

REPORT INFORMATION
  Report Type: Spontaneous
  Country: BR (occurrence: BR)
  Receive Date: 20221128
  Receipt Date: 20221128
  Transmission Date: 20230112
  Serious: Yes (Other)
  Sender: FDA-Public Use
  Company Number: BR-PFIZER INC-9415

PATIENT
  Age: 60 Year
  Sex: Female

DRUGS (2)
  1. VANCOMYCIN HYDROCHLORIDE [Suspect]
     Active Substance: VANCOMYCIN HYDROCHLORIDE
     Indication: Device related infection
     Dosage: 1 G, 2X/DAY
     Route: 042
  2. ACETAMINOPHEN [Concomitant]
     Active Substance: ACETAMINOPHEN
     Dosage: UNK
     Route: 065

REACTIONS (7)
  - Eosinophilia [Unknown]
  - Pyrexia [Recovered/Resolved]
  - Neutropenia [Unknown]
  - Oral disorder [Unknown]
  - Pruritus [Recovering/Resolving]
  - Rash [Unknown]
  - Erythema [Recovering/Resolving]
